FAERS Safety Report 16874674 (Version 2)
Quarter: 2020Q1

REPORT INFORMATION
  Report Type: Spontaneous
  Country: JP (occurrence: JP)
  Receive Date: 20191001
  Receipt Date: 20200130
  Transmission Date: 20200409
  Serious: Yes (Death)
  Sender: FDA-Public Use
  Company Number: PHJP2019JP012842

PATIENT
  Sex: Male

DRUGS (1)
  1. AFINITOR [Suspect]
     Active Substance: EVEROLIMUS
     Indication: NEUROENDOCRINE TUMOUR
     Dosage: UNK
     Route: 065

REACTIONS (5)
  - Malignant neoplasm progression [Fatal]
  - Hyperglycaemia [Recovered/Resolved]
  - Stomatitis [Recovered/Resolved]
  - Neuroendocrine tumour [Fatal]
  - Product use in unapproved indication [Unknown]
